FAERS Safety Report 21567969 (Version 1)
Quarter: 2022Q4

REPORT INFORMATION
  Report Type: Spontaneous
  Country: CN (occurrence: CN)
  Receive Date: 20221108
  Receipt Date: 20221108
  Transmission Date: 20230113
  Serious: Yes (Hospitalization)
  Sender: FDA-Public Use
  Company Number: CN-PFIZER INC-PV202200097558

PATIENT
  Age: 28 Year
  Sex: Female
  Weight: 51.8 kg

DRUGS (11)
  1. CARBOPROST TROMETHAMINE [Suspect]
     Active Substance: CARBOPROST TROMETHAMINE
     Indication: Therapeutic procedure
     Dosage: 250 UG, 1X/DAY
     Route: 030
     Dates: start: 20221023, end: 20221023
  2. CARBOPROST TROMETHAMINE [Suspect]
     Active Substance: CARBOPROST TROMETHAMINE
     Indication: Uterine hypotonus
  3. CARBETOCIN [Suspect]
     Active Substance: CARBETOCIN
     Indication: Therapeutic procedure
     Dosage: 100 UG, 1X/DAY
     Route: 040
     Dates: start: 20221023, end: 20221023
  4. CARBETOCIN [Suspect]
     Active Substance: CARBETOCIN
     Indication: Uterine hypotonus
  5. MISOPROSTOL [Suspect]
     Active Substance: MISOPROSTOL
     Indication: Therapeutic procedure
     Dosage: 0.2 MG, 1X/DAY
     Route: 060
     Dates: start: 20221023, end: 20221023
  6. MISOPROSTOL [Suspect]
     Active Substance: MISOPROSTOL
     Indication: Uterine hypotonus
  7. OXYTOCIN [Suspect]
     Active Substance: OXYTOCIN
     Indication: Therapeutic procedure
     Dosage: 20 IU, 1X/DAY
     Route: 041
     Dates: start: 20221023, end: 20221026
  8. OXYTOCIN [Suspect]
     Active Substance: OXYTOCIN
     Indication: Uterine hypotonus
  9. SODIUM CHLORIDE [Concomitant]
     Active Substance: SODIUM CHLORIDE
     Indication: Vehicle solution use
     Dosage: 500 UL, 1X/DAY
     Route: 041
     Dates: start: 20221023, end: 20221026
  10. MOTHERWORT [Concomitant]
     Indication: Haemorrhage prophylaxis
     Dosage: 40 MG, 2X/DAY
     Route: 030
     Dates: start: 20221023, end: 20221026
  11. LIDOCAINE HYDROCHLORIDE [Concomitant]
     Active Substance: LIDOCAINE HYDROCHLORIDE
     Indication: Local anaesthesia
     Dosage: 0.1 G, 1X/DAY
     Dates: start: 20221023, end: 20221023

REACTIONS (1)
  - Drug eruption [Recovering/Resolving]

NARRATIVE: CASE EVENT DATE: 20221023
